FAERS Safety Report 8908796 (Version 4)
Quarter: 2014Q1

REPORT INFORMATION
  Report Type: Report from Study
  Country: CA (occurrence: CA)
  Receive Date: 20121114
  Receipt Date: 20140220
  Transmission Date: 20141002
  Serious: Yes (Hospitalization, Other)
  Sender: FDA-Public Use
  Company Number: CA-ROCHE-1153524

PATIENT
  Age: 80 Year
  Sex: Female
  Weight: 60.3 kg

DRUGS (15)
  1. RITUXAN [Suspect]
     Indication: RHEUMATOID ARTHRITIS
     Dosage: DAY 1 AND  DAY 15
     Route: 042
     Dates: start: 20100118, end: 20121213
  2. ACTEMRA [Suspect]
     Indication: RHEUMATOID ARTHRITIS
     Route: 042
     Dates: start: 20131002, end: 20131127
  3. ACTEMRA [Suspect]
     Route: 042
     Dates: start: 20131127
  4. PLAVIX [Concomitant]
  5. EZETROL [Concomitant]
  6. TYLENOL ARTHRITIS [Concomitant]
  7. FUROSEMIDE [Concomitant]
  8. VITAMIN B12 [Concomitant]
  9. PANTOPRAZOLE [Concomitant]
  10. PREDNISONE [Concomitant]
  11. ACLASTA [Concomitant]
  12. DIPHENHYDRAMINE HCL [Concomitant]
     Route: 048
     Dates: start: 20100118, end: 20121213
  13. ACETAMINOPHEN [Concomitant]
     Route: 048
     Dates: start: 20100118, end: 20121213
  14. METHYLPREDNISOLONE [Concomitant]
     Route: 042
     Dates: start: 20100118, end: 20121213
  15. METHOTREXATE [Concomitant]

REACTIONS (5)
  - Intervertebral disc disorder [Not Recovered/Not Resolved]
  - Drug ineffective [Unknown]
  - Vasculitis cerebral [Unknown]
  - Pneumonia [Unknown]
  - Drug ineffective [Unknown]
